FAERS Safety Report 6414240-3 (Version None)
Quarter: 2009Q4

REPORT INFORMATION
  Report Type: 
  Country: None (occurrence: None)
  Receive Date: 20091026
  Receipt Date: 20091023
  Transmission Date: 20100525
  Serious: Yes (Other)
  Sender: FDA-Public Use
  Company Number: JP-B.I. PHARMACEUTICALS,INC./RIDGEFIELD-2009-BP-10964NB

PATIENT
  Age: 80 Year
  Sex: Female

DRUGS (5)
  1. SPIRIVA [Suspect]
     Indication: EMPHYSEMA
     Dosage: 1 DF
     Route: 055
     Dates: start: 20081215
  2. CELECOX [Suspect]
     Indication: OSTEOARTHRITIS
     Dosage: 200 MG
     Route: 048
     Dates: start: 20080110, end: 20080123
  3. ANPLAG [Concomitant]
     Indication: ARTERIAL OCCLUSIVE DISEASE
     Route: 048
     Dates: start: 20080324
  4. ZETIA [Concomitant]
     Indication: HYPERCHOLESTEROLAEMIA
     Route: 048
     Dates: start: 20081201
  5. GASMOTIN [Concomitant]
     Indication: GASTRITIS
     Route: 048
     Dates: start: 20090317

REACTIONS (1)
  - CARDIAC FAILURE [None]
